FAERS Safety Report 11792796 (Version 1)
Quarter: 2015Q4

REPORT INFORMATION
  Report Type: Spontaneous
  Country: US (occurrence: None)
  Receive Date: 20151130
  Receipt Date: 20151130
  Transmission Date: 20160305
  Serious: Yes (Death)
  Sender: FDA-Public Use
  Company Number: None

PATIENT
  Age: 12 Year
  Sex: Female
  Weight: 51.7 kg

DRUGS (7)
  1. ONCASPAR [Suspect]
     Active Substance: PEGASPARGASE
     Dosage: 3750 UNIT
     Dates: end: 20151101
  2. CYTARABINE. [Suspect]
     Active Substance: CYTARABINE
     Dates: end: 20151027
  3. METHOTREXATE [Suspect]
     Active Substance: METHOTREXATE
     Dates: end: 20151105
  4. PREDNISONE. [Suspect]
     Active Substance: PREDNISONE
     Dates: end: 20151110
  5. VINCRISTINE SULFATE. [Suspect]
     Active Substance: VINCRISTINE SULFATE
     Dates: end: 20151105
  6. DAUNORUBICIN [Suspect]
     Active Substance: DAUNORUBICIN
     Dates: end: 20151105
  7. HEPARIN [Concomitant]
     Active Substance: HEPARIN SODIUM

REACTIONS (5)
  - Haemolysis [None]
  - General physical health deterioration [None]
  - Blood culture positive [None]
  - Bacterial infection [None]
  - Shock [None]

NARRATIVE: CASE EVENT DATE: 20151118
